FAERS Safety Report 15625623 (Version 2)
Quarter: 2018Q4

REPORT INFORMATION
  Report Type: Report from Study
  Country: HK (occurrence: HK)
  Receive Date: 20181116
  Receipt Date: 20181125
  Transmission Date: 20190205
  Serious: Yes (Hospitalization, Other)
  Sender: FDA-Public Use
  Company Number: PHHY2018HK153600

PATIENT
  Age: 63 Year
  Sex: Male
  Weight: 51.8 kg

DRUGS (29)
  1. REVOLADE [Suspect]
     Active Substance: ELTROMBOPAG
     Indication: IMMUNE THROMBOCYTOPENIC PURPURA
     Dosage: 50/75 MG , QOD
     Route: 048
  2. IMMUNOGLOBULIN IV [Concomitant]
     Active Substance: HUMAN IMMUNOGLOBULIN G
     Dosage: 60 G, QD (60 G / QD (1 X DAILY))
     Route: 042
     Dates: start: 20170708
  3. IMMUNOGLOBULIN IV [Concomitant]
     Active Substance: HUMAN IMMUNOGLOBULIN G
     Dosage: 60 G, QD (60 G / QD (1 X DAILY))
     Route: 042
     Dates: start: 20170818
  4. IMMUNOGLOBULIN IV [Concomitant]
     Active Substance: HUMAN IMMUNOGLOBULIN G
     Dosage: 24 G, QD
     Route: 042
     Dates: start: 20180309, end: 20180309
  5. PREDNISOLONE. [Concomitant]
     Active Substance: PREDNISOLONE
     Indication: IMMUNE THROMBOCYTOPENIC PURPURA
     Dosage: 12.5 MG, QD (12.5 MG / QD (1 X DAILY))
     Route: 048
     Dates: start: 20171024, end: 20171030
  6. MMF [Concomitant]
     Active Substance: MYCOPHENOLATE MOFETIL
     Dosage: 500 MG, QD
     Route: 048
     Dates: start: 20180306, end: 20180516
  7. REVOLADE [Suspect]
     Active Substance: ELTROMBOPAG
     Dosage: 25 MG, UNK
     Route: 048
  8. PREDNISOLONE. [Concomitant]
     Active Substance: PREDNISOLONE
     Dosage: 10 MG, QD (10 MG / QD (1 X DAILY))
     Route: 048
     Dates: start: 20171128, end: 20180122
  9. IMMUNOGLOBULIN IV [Concomitant]
     Active Substance: HUMAN IMMUNOGLOBULIN G
     Indication: IMMUNE THROMBOCYTOPENIC PURPURA
     Dosage: 60 G, QD (60 G / QD (1 X DAILY))
     Route: 042
     Dates: start: 20170622
  10. PREDNISOLONE. [Concomitant]
     Active Substance: PREDNISOLONE
     Dosage: 10 MG  QD (1 X DAILY))
     Route: 048
     Dates: start: 20180215
  11. PREDNISOLONE. [Concomitant]
     Active Substance: PREDNISOLONE
     Dosage: 10 MG, QD (10 MG / QD (1 X DAILY))
     Route: 048
     Dates: start: 20180306, end: 20180516
  12. PREDNISOLONE. [Concomitant]
     Active Substance: PREDNISOLONE
     Dosage: 7.5 MG, QD (7.5 MG / QD (1 X DAILY))
     Route: 048
     Dates: start: 20180123, end: 20180214
  13. IMMUNOGLOBULIN IV [Concomitant]
     Active Substance: HUMAN IMMUNOGLOBULIN G
     Dosage: 60 G, QD (60 G / QD (1 X DAILY))
     Route: 042
     Dates: start: 20170710
  14. IMMUNOGLOBULIN IV [Concomitant]
     Active Substance: HUMAN IMMUNOGLOBULIN G
     Dosage: 25 G, QD
     Route: 042
     Dates: start: 20180310, end: 20180310
  15. PREDNISOLONE. [Concomitant]
     Active Substance: PREDNISOLONE
     Dosage: 7.5 MG, QD (7.5 MG / QD (1 X DAILY))
     Route: 048
     Dates: start: 20171114, end: 20171127
  16. CALCICHEW D3 [Concomitant]
     Active Substance: CALCIUM\CHOLECALCIFEROL
     Indication: PRODUCT USED FOR UNKNOWN INDICATION
     Dosage: 1 DF, QD
     Route: 065
  17. MMF [Concomitant]
     Active Substance: MYCOPHENOLATE MOFETIL
     Indication: IMMUNE THROMBOCYTOPENIC PURPURA
     Dosage: 500 MG, BID
     Route: 048
     Dates: start: 20180215, end: 20180305
  18. METFORMIN [Concomitant]
     Active Substance: METFORMIN HYDROCHLORIDE
     Indication: DIABETES MELLITUS
     Dosage: 1000 MG, BID (1000 MG / BID (2 X DAILY))
     Route: 048
     Dates: start: 201704
  19. ZOCOR [Concomitant]
     Active Substance: SIMVASTATIN
     Indication: HYPERLIPIDAEMIA
     Dosage: 20 MG, QD
     Route: 048
     Dates: start: 20170825, end: 20180604
  20. ENTECAVIR. [Concomitant]
     Active Substance: ENTECAVIR
     Indication: HEPATITIS
     Dosage: 0.5 MG, QD (0.5 MG / QD (1 X DAILY))
     Route: 048
     Dates: start: 20170414
  21. IMMUNOGLOBULIN IV [Concomitant]
     Active Substance: HUMAN IMMUNOGLOBULIN G
     Dosage: 60 G, QD (60 G / QD (1 X DAILY))
     Route: 042
     Dates: start: 20170709
  22. PREDNISOLONE. [Concomitant]
     Active Substance: PREDNISOLONE
     Dosage: 10 MG, QD, (10 MG / QD (1 X DAILY))
     Route: 048
     Dates: start: 20171031, end: 20171113
  23. CELLCEPT [Concomitant]
     Active Substance: MYCOPHENOLATE MOFETIL\MYCOPHENOLATE MOFETIL HYDROCHLORIDE
     Indication: PRODUCT USED FOR UNKNOWN INDICATION
     Dosage: 1 GM AM AND 500MG PM
     Route: 065
  24. METFORMIN [Concomitant]
     Active Substance: METFORMIN HYDROCHLORIDE
     Indication: GLYCOSYLATED HAEMOGLOBIN INCREASED
     Dosage: 500 MG, BID (500 MG / BID (2 X DAILY))
     Route: 048
     Dates: start: 20180123
  25. IMMUNOGLOBULIN IV [Concomitant]
     Active Substance: HUMAN IMMUNOGLOBULIN G
     Dosage: 60 G, QD (60 G / QD (1 X DAILY))
     Route: 042
     Dates: start: 20170711
  26. MMF [Concomitant]
     Active Substance: MYCOPHENOLATE MOFETIL
     Dosage: 1000 MG, QD
     Route: 048
     Dates: start: 20180306, end: 20180516
  27. PANTOLOC [Concomitant]
     Active Substance: PANTOPRAZOLE SODIUM
     Indication: GASTRITIS
     Dosage: 40 MG, QD (40 MG / QD (1 X DAILY))
     Route: 048
     Dates: start: 201704
  28. IMMUNOGLOBULIN IV [Concomitant]
     Active Substance: HUMAN IMMUNOGLOBULIN G
     Dosage: 60 G, QD (60 G / QD (1 X DAILY))
     Route: 042
     Dates: start: 20170623
  29. IMMUNOGLOBULIN IV [Concomitant]
     Active Substance: HUMAN IMMUNOGLOBULIN G
     Dosage: 60 G, QD (60 G / QD (1 X DAILY))
     Route: 042
     Dates: start: 20170810

REACTIONS (4)
  - Gallbladder enlargement [Unknown]
  - Gastroenteritis [Recovered/Resolved]
  - Vomiting [Recovered/Resolved]
  - Frequent bowel movements [Recovered/Resolved]

NARRATIVE: CASE EVENT DATE: 20180630
